FAERS Safety Report 17880712 (Version 1)
Quarter: 2020Q2

REPORT INFORMATION
  Report Type: Spontaneous
  Country: FR (occurrence: FR)
  Receive Date: 20200610
  Receipt Date: 20200610
  Transmission Date: 20200714
  Serious: Yes (Hospitalization, Other)
  Sender: FDA-Public Use
  Company Number: FR-PFIZER INC-2020223257

PATIENT
  Age: 68 Year
  Sex: Male

DRUGS (20)
  1. LOVENOX [Suspect]
     Active Substance: ENOXAPARIN SODIUM
     Indication: VASCULAR DISORDER PROPHYLAXIS
     Dosage: UNK
     Route: 058
     Dates: start: 20200420, end: 20200423
  2. AUGMENTIN [Concomitant]
     Active Substance: AMOXICILLIN\CLAVULANATE POTASSIUM
     Dosage: UNK
     Route: 048
     Dates: start: 20200408, end: 20200415
  3. TIORFAN [Concomitant]
     Active Substance: RACECADOTRIL
     Indication: CLOSTRIDIUM DIFFICILE COLITIS
     Dosage: 1 DF, 3X/DAY
     Route: 048
     Dates: start: 20200422, end: 20200423
  4. SERESTA [Concomitant]
     Active Substance: OXAZEPAM
     Dosage: 80 MG, 1X/DAY
     Route: 048
     Dates: start: 20200422
  5. DIAZEPAM ARROW [Concomitant]
     Dosage: 10 MG, 4X/DAY
     Route: 048
     Dates: start: 20200421, end: 20200422
  6. SERETIDE [Concomitant]
     Active Substance: FLUTICASONE PROPIONATE\SALMETEROL XINAFOATE
     Dosage: 4 DF, DAILY
     Route: 055
     Dates: start: 20200423
  7. ACETYLSALICYLIC ACID [Concomitant]
     Active Substance: ASPIRIN
     Dosage: 100 MG, 1X/DAY
     Route: 048
  8. VENLAFAXINE [Concomitant]
     Active Substance: VENLAFAXINE HYDROCHLORIDE
     Dosage: 300 MG, 1X/DAY
     Route: 048
  9. METFORMINE [METFORMIN] [Concomitant]
     Active Substance: METFORMIN HYDROCHLORIDE
     Dosage: 1000 MG, DAILY
     Route: 048
     Dates: end: 20200422
  10. BECILAN [Concomitant]
     Active Substance: PYRIDOXINE
     Dosage: 250 MG, 1X/DAY
     Route: 042
     Dates: start: 20200420, end: 20200423
  11. ROSUVASTATINE ACCORD [Concomitant]
     Active Substance: ROSUVASTATIN CALCIUM
     Dosage: 5 MG, 1X/DAY
     Route: 048
     Dates: end: 20200420
  12. THIAMINE CHLORIDE [THIAMINE] [Concomitant]
     Dosage: 500 MG, 1X/DAY
     Route: 042
     Dates: start: 20200420, end: 20200423
  13. PERINDOPRIL [Concomitant]
     Active Substance: PERINDOPRIL
     Dosage: 6 MG, DAILY
     Route: 048
     Dates: end: 20200420
  14. OMEXEL [Concomitant]
     Active Substance: TAMSULOSIN HYDROCHLORIDE
     Dosage: 0.4 MG, 1X/DAY
     Route: 048
     Dates: start: 20200416
  15. DIFICLIR [Suspect]
     Active Substance: FIDAXOMICIN
     Indication: CLOSTRIDIUM DIFFICILE COLITIS
     Dosage: 400 MG, 1X/DAY
     Route: 048
     Dates: start: 20200421, end: 20200424
  16. SPECIAFOLDINE [Concomitant]
     Active Substance: FOLIC ACID
     Dosage: 1 DF, 1X/DAY
     Route: 048
     Dates: start: 20200422, end: 20200423
  17. TARDYFERON [Concomitant]
     Active Substance: FERROUS SULFATE
     Dosage: 1 DF, 2X/DAY
     Route: 048
  18. TAHOR [Suspect]
     Active Substance: ATORVASTATIN CALCIUM
     Indication: PROPHYLAXIS
     Dosage: 10 MG, 1X/DAY
     Route: 048
     Dates: start: 20200420, end: 20200423
  19. MECIR [Concomitant]
     Active Substance: TAMSULOSIN HYDROCHLORIDE
     Dosage: 0.4 MG, 1X/DAY
     Route: 048
     Dates: start: 20200423
  20. NICOTINAMIDE RENAUDIN [Concomitant]
     Dosage: 500 MG, 1X/DAY
     Route: 042
     Dates: start: 20200420, end: 20200423

REACTIONS (1)
  - Neutropenia [Not Recovered/Not Resolved]

NARRATIVE: CASE EVENT DATE: 20200423
